FAERS Safety Report 7568294-1 (Version None)
Quarter: 2011Q2

REPORT INFORMATION
  Report Type: 
  Country: None (occurrence: None)
  Receive Date: 20110617
  Receipt Date: 20110609
  Transmission Date: 20111010
  Serious: Yes (Death)
  Sender: FDA-Public Use
  Company Number: 2011S1000837

PATIENT
  Age: 59 Year
  Sex: Female

DRUGS (1)
  1. LIVALO [Suspect]
     Dosage: 2 MG; ; PO
     Route: 048
     Dates: start: 20110309

REACTIONS (1)
  - SUDDEN DEATH [None]
